FAERS Safety Report 7943315-2 (Version None)
Quarter: 2011Q4

REPORT INFORMATION
  Report Type: 
  Country: None (occurrence: None)
  Receive Date: 20111128
  Receipt Date: 20111123
  Transmission Date: 20120403
  Serious: Yes (Life-Threatening, Hospitalization)
  Sender: FDA-Public Use
  Company Number: PHHY2011DE103138

PATIENT
  Age: 53 Year
  Sex: Female
  Weight: 129 kg

DRUGS (2)
  1. VALPROATE SODIUM [Suspect]
     Dosage: 1200 MG, DAILY
     Dates: start: 20090101, end: 20110502
  2. CLOZAPINE [Suspect]
     Indication: SCHIZOPHRENIA
     Dosage: 450 UG, DAILY
     Route: 048
     Dates: end: 20110502

REACTIONS (3)
  - AGRANULOCYTOSIS [None]
  - PNEUMONIA [None]
  - ERYSIPELAS [None]
